FAERS Safety Report 7114304-5 (Version None)
Quarter: 2010Q4

REPORT INFORMATION
  Report Type: 
  Country: None (occurrence: None)
  Receive Date: 20101119
  Receipt Date: 20101116
  Transmission Date: 20110411
  Serious: Yes (Death, Hospitalization, Other)
  Sender: FDA-Public Use
  Company Number: JP-SANOFI-AVENTIS-2009SA000365

PATIENT
  Age: 76 Year
  Sex: Male
  Weight: 63 kg

DRUGS (9)
  1. DOCETAXEL [Suspect]
     Route: 042
     Dates: start: 20090501, end: 20090501
  2. DOCETAXEL [Suspect]
     Route: 042
  3. DOCETAXEL [Suspect]
     Route: 042
     Dates: start: 20090731, end: 20090731
  4. DOCETAXEL [Suspect]
     Route: 042
     Dates: start: 20090901, end: 20090901
  5. UROLOGICALS [Concomitant]
     Route: 048
  6. DOGMATYL [Concomitant]
     Route: 048
  7. LOXOPROFEN [Concomitant]
     Route: 048
  8. UFT [Concomitant]
     Route: 048
  9. TAKEPRON [Concomitant]
     Route: 048

REACTIONS (7)
  - BONE MARROW FAILURE [None]
  - DECREASED APPETITE [None]
  - INTERSTITIAL LUNG DISEASE [None]
  - MALAISE [None]
  - NEUTROPHIL COUNT DECREASED [None]
  - PNEUMONIA [None]
  - RESPIRATORY FAILURE [None]
